FAERS Safety Report 26053424 (Version 2)
Quarter: 2025Q4

REPORT INFORMATION
  Report Type: Report from Study
  Country: US (occurrence: US)
  Receive Date: 20251117
  Receipt Date: 20251128
  Transmission Date: 20260117
  Serious: Yes (Other)
  Sender: TEVA
  Company Number: US-TEVA-VS-3392876

PATIENT
  Sex: Female

DRUGS (2)
  1. CYCLOSPORINE [Interacting]
     Active Substance: CYCLOSPORINE
     Indication: Cystitis interstitial
     Route: 048
  2. PENTOSAN POLYSULFATE SODIUM [Interacting]
     Active Substance: PENTOSAN POLYSULFATE SODIUM
     Indication: Cystitis interstitial
     Dosage: VIA BLADDER INSTILLATION ONLY
     Route: 043

REACTIONS (2)
  - Pigmentary maculopathy [Unknown]
  - Drug interaction [Unknown]
